FAERS Safety Report 4747150-8 (Version None)
Quarter: 2005Q3

REPORT INFORMATION
  Report Type: 
  Country: None (occurrence: None)
  Receive Date: 20050815
  Receipt Date: 20050729
  Transmission Date: 20060218
  Serious: Yes (Other)
  Sender: FDA-Public Use
  Company Number: US_0410106491

PATIENT
  Age: 18 Year
  Sex: Female
  Weight: 105 kg

DRUGS (8)
  1. ZYPREXA [Suspect]
     Dosage: 10 MG/ 2 DAY
     Dates: start: 19991027
  2. PAXIL [Concomitant]
  3. TRAZADONE (TRAZODONE) [Concomitant]
  4. DEPO-MEDROL [Concomitant]
  5. CARBAMAZEPINE [Concomitant]
  6. AMANTADINE [Concomitant]
  7. CLONAZEPAM [Concomitant]
  8. DEPO-PROVERA SUSPENSION/INJ [Concomitant]

REACTIONS (22)
  - ABDOMINAL PAIN UPPER [None]
  - AMENORRHOEA [None]
  - ANXIETY [None]
  - CONVULSION [None]
  - DIABETES MELLITUS [None]
  - DYSLIPIDAEMIA [None]
  - EMOTIONAL DISTRESS [None]
  - FALL [None]
  - HAEMORRHAGIC CYST [None]
  - HEAD INJURY [None]
  - HYPERTENSION [None]
  - HYPERTHYROIDISM [None]
  - INFERTILITY [None]
  - MENTAL STATUS CHANGES [None]
  - NAUSEA [None]
  - PAIN IN EXTREMITY [None]
  - PANIC ATTACK [None]
  - PELVIC PAIN [None]
  - POLYCYSTIC OVARIES [None]
  - SINUS CONGESTION [None]
  - ULTRASOUND SCAN ABNORMAL [None]
  - WEIGHT INCREASED [None]
